FAERS Safety Report 4892400-0 (Version None)
Quarter: 2006Q1

REPORT INFORMATION
  Report Type: 
  Country: None (occurrence: None)
  Receive Date: 20060123
  Receipt Date: 20060123
  Transmission Date: 20060701
  Serious: Yes (Hospitalization)
  Sender: FDA-Public Use
  Company Number: None

PATIENT

DRUGS (2)
  1. TRASTUZUMAB [Suspect]
     Indication: BREAST CANCER METASTATIC
     Dosage: 2 MG/KG QWK IV
     Route: 042
     Dates: start: 20050401, end: 20060113
  2. BEVACIZUMAB [Suspect]
     Indication: BREAST CANCER METASTATIC
     Dosage: 3 MG/KG Q2 WK IV
     Route: 042
     Dates: start: 20060401, end: 20060113

REACTIONS (6)
  - ASTHENIA [None]
  - DIARRHOEA [None]
  - FALL [None]
  - INFLUENZA [None]
  - NAUSEA [None]
  - VOMITING [None]
